FAERS Safety Report 15691741 (Version 31)
Quarter: 2019Q3

REPORT INFORMATION
  Report Type: Report from Study
  Country: TR (occurrence: TR)
  Receive Date: 20181205
  Receipt Date: 20190906
  Transmission Date: 20191004
  Serious: Yes (Life-Threatening, Hospitalization)
  Sender: FDA-Public Use
  Company Number: TR-EISAI MEDICAL RESEARCH-EC-2018-048766

PATIENT
  Age: 50 Year
  Sex: Female
  Weight: 60.8 kg

DRUGS (6)
  1. LENVATINIB [Suspect]
     Active Substance: LENVATINIB
     Indication: ENDOMETRIAL CANCER
     Route: 048
     Dates: start: 20181120, end: 20181130
  2. PEMBROLIZUMAB. [Suspect]
     Active Substance: PEMBROLIZUMAB
     Route: 041
     Dates: start: 20190403
  3. CIPRALEX [Concomitant]
     Active Substance: ESCITALOPRAM OXALATE
     Dates: start: 201810, end: 20181201
  4. BLOOD CELLS, RED [Concomitant]
     Active Substance: HUMAN RED BLOOD CELL
     Dates: start: 20181201, end: 20181201
  5. PEMBROLIZUMAB. [Suspect]
     Active Substance: PEMBROLIZUMAB
     Indication: ENDOMETRIAL CANCER
     Route: 041
     Dates: start: 20181120, end: 20181120
  6. MINOSET [Concomitant]
     Active Substance: ACETAMINOPHEN
     Dates: start: 20181125, end: 20181201

REACTIONS (2)
  - Hypertension [Recovered/Resolved]
  - Cerebral haemorrhage [Recovered/Resolved with Sequelae]

NARRATIVE: CASE EVENT DATE: 20181201
